FAERS Safety Report 7952454-1 (Version None)
Quarter: 2011Q4

REPORT INFORMATION
  Report Type: 
  Country: None (occurrence: None)
  Receive Date: 20111201
  Receipt Date: 20111128
  Transmission Date: 20120403
  Serious: Yes (Hospitalization)
  Sender: FDA-Public Use
  Company Number: JP-BAYER-2011-087776

PATIENT
  Age: 75 Year
  Sex: Male

DRUGS (11)
  1. NEXAVAR [Suspect]
     Dosage: 200 MG OR 400 MG ALTERNATELY
     Dates: start: 20110713, end: 20110916
  2. URSO 250 [Concomitant]
     Dosage: DAILY DOSE 600 MG
     Route: 048
  3. ALLEGRA [Concomitant]
     Dosage: DAILY DOSE 120 MG
     Route: 048
  4. UNKNOWN DRUG [Concomitant]
     Dosage: DAILY DOSE 3 G
     Route: 048
  5. VITAMIN K2 [Concomitant]
     Route: 065
  6. NEXAVAR [Suspect]
     Dosage: DAILY DOSE 400 MG
     Dates: start: 20110711, end: 20110712
  7. NEXAVAR [Suspect]
     Indication: HEPATIC NEOPLASM MALIGNANT
     Dosage: DAILY DOSE 200 MG
     Route: 048
     Dates: start: 20110627, end: 20110710
  8. CASODEX [Concomitant]
     Dosage: DAILY DOSE 80 MG
     Route: 048
  9. NORVASC [Concomitant]
     Dosage: DAILY DOSE 5 MG
     Route: 048
  10. OLMESARTAN MEDOXOMIL [Concomitant]
     Dosage: DAILY DOSE 40 MG
     Route: 048
  11. DOXAZOSIN MESYLATE [Concomitant]
     Dosage: DAILY DOSE 4 MG
     Route: 048

REACTIONS (1)
  - BLOOD CREATINE PHOSPHOKINASE INCREASED [None]
